FAERS Safety Report 5047371-3 (Version None)
Quarter: 2006Q3

REPORT INFORMATION
  Report Type: 
  Country: None (occurrence: None)
  Receive Date: 20060703
  Receipt Date: 20060619
  Transmission Date: 20061208
  Serious: Yes (Other)
  Sender: FDA-Public Use
  Company Number: AU-2006-016311

PATIENT
  Age: 29 Year
  Sex: Female

DRUGS (1)
  1. ULTRAVIST 300 [Suspect]
     Indication: ANGIOGRAM
     Dosage: INTRA-ARTERIAL
     Route: 013

REACTIONS (3)
  - CEREBRAL INFARCTION [None]
  - CEREBROVASCULAR ACCIDENT [None]
  - PROCEDURAL COMPLICATION [None]
